FAERS Safety Report 16738339 (Version 1)
Quarter: 2019Q3

REPORT INFORMATION
  Report Type: Spontaneous
  Country: US (occurrence: US)
  Receive Date: 20190825
  Receipt Date: 20190825
  Transmission Date: 20191005
  Serious: No
  Sender: FDA-Public Use
  Company Number: US-AMGEN-USASP2019126319

PATIENT
  Age: 72 Year
  Sex: Female

DRUGS (1)
  1. PROLIA [Suspect]
     Active Substance: DENOSUMAB
     Indication: OSTEOPOROSIS POSTMENOPAUSAL
     Dosage: 60 MILLIGRAM, Q6MO
     Route: 065
     Dates: start: 201810

REACTIONS (4)
  - Gait inability [Not Recovered/Not Resolved]
  - Osteoarthritis [Unknown]
  - Sleep disorder due to a general medical condition [Unknown]
  - Spinal deformity [Unknown]

NARRATIVE: CASE EVENT DATE: 2019
